FAERS Safety Report 18558887 (Version 3)
Quarter: 2021Q3

REPORT INFORMATION
  Report Type: Report from Study
  Country: US (occurrence: US)
  Receive Date: 20201130
  Receipt Date: 20210806
  Transmission Date: 20211014
  Serious: No
  Sender: FDA-Public Use
  Company Number: US-GW PHARMA-202011USGW04108

PATIENT

DRUGS (3)
  1. BRIVIACT [Concomitant]
     Active Substance: BRIVARACETAM
     Indication: PRODUCT USED FOR UNKNOWN INDICATION
     Dosage: UNK
     Route: 065
  2. EPIDIOLEX [Suspect]
     Active Substance: CANNABIDIOL
     Indication: EPILEPSY
     Dosage: 175 MILLIGRAM, BID (INITIAL PRESCRIBED DOSE)
     Route: 048
     Dates: start: 20200929, end: 20201028
  3. EPIDIOLEX [Suspect]
     Active Substance: CANNABIDIOL
     Dosage: 50 MILLIGRAM, BID (LOWERED DOSE)
     Route: 048
     Dates: start: 20201029

REACTIONS (5)
  - Vision blurred [Not Recovered/Not Resolved]
  - Diarrhoea haemorrhagic [Recovered/Resolved]
  - Memory impairment [Recovering/Resolving]
  - Depressed level of consciousness [Recovering/Resolving]
  - Hypersomnia [Recovering/Resolving]

NARRATIVE: CASE EVENT DATE: 2020
